FAERS Safety Report 7041285-5 (Version None)
Quarter: 2010Q4

REPORT INFORMATION
  Report Type: 
  Country: None (occurrence: None)
  Receive Date: 20101013
  Receipt Date: 20101005
  Transmission Date: 20110411
  Serious: Yes (Hospitalization)
  Sender: FDA-Public Use
  Company Number: PHHO2010FR15099

PATIENT
  Sex: Male
  Weight: 88 kg

DRUGS (6)
  1. NEORAL [Suspect]
     Indication: RENAL TRANSPLANT
     Dosage: 175MG/DAY
     Route: 048
     Dates: start: 20100428, end: 20100908
  2. CELLCEPT [Concomitant]
     Indication: RENAL TRANSPLANT
     Dosage: 500 MG, BID
     Route: 048
     Dates: start: 20100428
  3. CORTANCYL [Concomitant]
     Indication: RENAL TRANSPLANT
  4. LASIX [Concomitant]
  5. AMLODIPINE [Concomitant]
  6. BACTRIM DS [Concomitant]

REACTIONS (6)
  - COMPLEX REGIONAL PAIN SYNDROME [None]
  - DRUG INTOLERANCE [None]
  - KIDNEY TRANSPLANT REJECTION [None]
  - PAIN IN EXTREMITY [None]
  - RENAL ARTERY STENOSIS [None]
  - RENAL TUBULAR DISORDER [None]
